FAERS Safety Report 14834553 (Version 1)
Quarter: 2018Q2

REPORT INFORMATION
  Report Type: Spontaneous
  Country: US (occurrence: US)
  Receive Date: 20180501
  Receipt Date: 20180501
  Transmission Date: 20180711
  Serious: No
  Sender: FDA-Public Use
  Company Number: US-AKRON, INC.-2046929

PATIENT
  Sex: Female

DRUGS (1)
  1. THERATEARS LUBRICANT EYE DROPS [Suspect]
     Active Substance: CARBOXYMETHYLCELLULOSE SODIUM

REACTIONS (5)
  - Instillation site foreign body sensation [Not Recovered/Not Resolved]
  - Eye irritation [Unknown]
  - Conjunctivitis [Unknown]
  - Instillation site vesicles [Recovering/Resolving]
  - Hypersensitivity [Recovering/Resolving]
